FAERS Safety Report 18286868 (Version 2)
Quarter: 2020Q3

REPORT INFORMATION
  Report Type: Report from Study
  Country: CA (occurrence: CA)
  Receive Date: 20200921
  Receipt Date: 20200925
  Transmission Date: 20201103
  Serious: Yes (Hospitalization)
  Sender: FDA-Public Use
  Company Number: CA-BIOGEN-2020BI00925573

PATIENT
  Age: 49 Year
  Sex: Female

DRUGS (1)
  1. TYSABRI [Suspect]
     Active Substance: NATALIZUMAB
     Indication: MULTIPLE SCLEROSIS
     Dosage: INFUSED FOR OVER 1 HOUR
     Route: 042
     Dates: start: 20111227

REACTIONS (1)
  - Cholecystitis infective [Not Recovered/Not Resolved]

NARRATIVE: CASE EVENT DATE: 20200902
